FAERS Safety Report 17920915 (Version 2)
Quarter: 2020Q2

REPORT INFORMATION
  Report Type: Spontaneous
  Country: DE (occurrence: DE)
  Receive Date: 20200622
  Receipt Date: 20200625
  Transmission Date: 20200714
  Serious: Yes (Hospitalization)
  Sender: FDA-Public Use
  Company Number: DE-ROCHE-2620691

PATIENT
  Age: 28 Year
  Sex: Male
  Weight: 80 kg

DRUGS (18)
  1. ETOPOSIDE. [Suspect]
     Active Substance: ETOPOSIDE
     Indication: BURKITT^S LYMPHOMA
     Dosage: 6 CYCLES
     Route: 065
  2. IFOSFAMIDE. [Suspect]
     Active Substance: IFOSFAMIDE
     Indication: BURKITT^S LYMPHOMA
     Dosage: 6 CYCLES
     Route: 065
  3. METAMIZOLE [Concomitant]
     Active Substance: METAMIZOLE
  4. CYTARABINE. [Suspect]
     Active Substance: CYTARABINE
     Indication: BURKITT^S LYMPHOMA
     Dosage: 6 CYCLES
     Route: 065
  5. AMPHOTERICIN B. [Suspect]
     Active Substance: AMPHOTERICIN B
     Indication: PRODUCT USED FOR UNKNOWN INDICATION
     Route: 048
  6. TROSPIUM CHLORIDE. [Concomitant]
     Active Substance: TROSPIUM CHLORIDE
     Indication: SYMPTOMATIC TREATMENT
     Route: 065
  7. GLANDOMED [Concomitant]
  8. CYCLOPHOSPHAMIDE. [Suspect]
     Active Substance: CYCLOPHOSPHAMIDE
     Indication: BURKITT^S LYMPHOMA
     Dosage: 6 CYCLES
     Route: 065
  9. METHOTREXATE. [Suspect]
     Active Substance: METHOTREXATE
     Indication: PRODUCT USED FOR UNKNOWN INDICATION
     Route: 065
  10. DEXAMETHASONE. [Suspect]
     Active Substance: DEXAMETHASONE
     Indication: BURKITT^S LYMPHOMA
     Dosage: 6 CYCLES
     Route: 065
  11. ACYCLOVIR [ACICLOVIR] [Concomitant]
     Active Substance: ACYCLOVIR
  12. VINCRISTINE [Suspect]
     Active Substance: VINCRISTINE
     Indication: BURKITT^S LYMPHOMA
     Dosage: 6 CYCLES
     Route: 065
  13. RITUXIMAB. [Suspect]
     Active Substance: RITUXIMAB
     Indication: BURKITT^S LYMPHOMA
     Dosage: 6 CYCLES
     Route: 065
  14. ALLOPURINOL. [Suspect]
     Active Substance: ALLOPURINOL
     Indication: PRODUCT USED FOR UNKNOWN INDICATION
     Route: 065
  15. SULFAMETHOXAZOLE/TRIMETHOPRIM [Concomitant]
     Active Substance: SULFAMETHOXAZOLE\TRIMETHOPRIM
  16. CIPROFLOXACIN. [Concomitant]
     Active Substance: CIPROFLOXACIN
     Indication: PYELONEPHRITIS
     Route: 065
  17. TAMSULOSIN [Suspect]
     Active Substance: TAMSULOSIN
     Indication: BENIGN PROSTATIC HYPERPLASIA
     Dosage: 0.4 MG, ONCE DAILY
     Route: 065
  18. PANTOPRAZOLE [Concomitant]
     Active Substance: PANTOPRAZOLE

REACTIONS (6)
  - Febrile neutropenia [Recovered/Resolved]
  - Pyelonephritis [Recovered/Resolved]
  - Mucosal inflammation [Recovered/Resolved]
  - Leukocyturia [Recovered/Resolved]
  - Hydronephrosis [Recovered/Resolved]
  - Bladder spasm [Recovered/Resolved]
